FAERS Safety Report 15778942 (Version 1)
Quarter: 2019Q1

REPORT INFORMATION
  Report Type: Report from Study
  Country: US (occurrence: US)
  Receive Date: 20190101
  Receipt Date: 20190101
  Transmission Date: 20190417
  Serious: Yes (Hospitalization)
  Sender: FDA-Public Use
  Company Number: US-ROCHE-2229042

PATIENT
  Age: 8 Year
  Sex: Male

DRUGS (2)
  1. XOLAIR [Suspect]
     Active Substance: OMALIZUMAB
     Indication: ASTHMA
     Route: 058
     Dates: start: 20180716, end: 20180820
  2. XOLAIR [Suspect]
     Active Substance: OMALIZUMAB
     Indication: URTICARIA

REACTIONS (5)
  - Pyrexia [Recovered/Resolved]
  - Tremor [Recovered/Resolved]
  - Nasopharyngitis [Unknown]
  - Fatigue [Recovered/Resolved]
  - Headache [Recovered/Resolved]

NARRATIVE: CASE EVENT DATE: 20180820
